FAERS Safety Report 11146313 (Version 2)
Quarter: 2015Q2

REPORT INFORMATION
  Report Type: Spontaneous
  Country: JP (occurrence: JP)
  Receive Date: 20150528
  Receipt Date: 20150619
  Transmission Date: 20150821
  Serious: Yes (Hospitalization)
  Sender: FDA-Public Use
  Company Number: JP-PFIZER INC-2015178959

PATIENT
  Age: 84 Year
  Sex: Male

DRUGS (2)
  1. CORTRIL [Suspect]
     Active Substance: HYDROCORTISONE
     Indication: HYPONATRAEMIA
     Dosage: 20 MG, UNK
     Route: 048
  2. CORTRIL [Suspect]
     Active Substance: HYDROCORTISONE
     Indication: ADRENAL INSUFFICIENCY
     Dosage: 10 MG X 5 DAYS IN A WEEK, OFF ON MONDAYS AND THURSDAYS
     Route: 048

REACTIONS (1)
  - Decreased appetite [Unknown]
